FAERS Safety Report 4399294-0 (Version None)
Quarter: 2004Q3

REPORT INFORMATION
  Report Type: 
  Country: None (occurrence: None)
  Receive Date: 20040712
  Receipt Date: 20040628
  Transmission Date: 20050211
  Serious: Yes (Hospitalization, Other)
  Sender: FDA-Public Use
  Company Number: 2004031514

PATIENT
  Age: 18 Year
  Sex: Female
  Weight: 46 kg

DRUGS (6)
  1. GEODON [Suspect]
     Indication: AGGRESSION
     Dosage: 100 MG (2 IN 1 D), ORAL
     Route: 048
     Dates: start: 20040401, end: 20040511
  2. GEODON [Suspect]
     Indication: AGITATION
     Dosage: 100 MG (2 IN 1 D), ORAL
     Route: 048
     Dates: start: 20040401, end: 20040511
  3. GEODON [Suspect]
     Indication: PSYCHOTIC DISORDER
     Dosage: 100 MG (2 IN 1 D), ORAL
     Route: 048
     Dates: start: 20040401, end: 20040511
  4. LANSOPRAZOLE [Concomitant]
  5. TOPIRAMATE [Concomitant]
  6. GUANFACINE HYDROCHLORIDE           (GUANFACINE HYDROCHLORIDE) [Concomitant]

REACTIONS (3)
  - HEADACHE [None]
  - PANCREATITIS [None]
  - PHOTOPHOBIA [None]
